FAERS Safety Report 10199977 (Version 1)
Quarter: 2014Q2

REPORT INFORMATION
  Report Type: Spontaneous
  Country: US (occurrence: US)
  Receive Date: 20140527
  Receipt Date: 20140527
  Transmission Date: 20141212
  Serious: No
  Sender: FDA-Public Use
  Company Number: US-NOVEN-14US008734

PATIENT
  Age: 8 Year
  Sex: Female
  Weight: 25.85 kg

DRUGS (3)
  1. DAYTRANA [Suspect]
     Indication: PRODUCT USED FOR UNKNOWN INDICATION
     Dosage: 20 MG, UNK
     Route: 062
     Dates: start: 20140124, end: 20140124
  2. DAYTRANA [Suspect]
     Dosage: 1/2 OF 20 MG, UNK
     Route: 062
     Dates: start: 20140125
  3. BENADRYL                           /00000402/ [Concomitant]
     Indication: SLEEP DISORDER
     Dosage: 12.5 MG, BEDTIME
     Route: 048

REACTIONS (11)
  - Crying [Recovered/Resolved]
  - Mania [Recovered/Resolved]
  - Headache [Recovered/Resolved]
  - Abdominal pain upper [Recovering/Resolving]
  - Decreased appetite [Recovering/Resolving]
  - Affect lability [Recovered/Resolved]
  - Insomnia [Unknown]
  - Drug effect increased [Recovering/Resolving]
  - Drug prescribing error [Recovered/Resolved]
  - Wrong technique in drug usage process [Recovered/Resolved]
  - Off label use [Unknown]
